FAERS Safety Report 16691279 (Version 2)
Quarter: 2019Q3

REPORT INFORMATION
  Report Type: Report from Study
  Country: CH (occurrence: CH)
  Receive Date: 20190812
  Receipt Date: 20190904
  Transmission Date: 20191004
  Serious: Yes (Hospitalization)
  Sender: FDA-Public Use
  Company Number: CH-EMD SERONO-9098100

PATIENT
  Age: 48 Year
  Sex: Female

DRUGS (2)
  1. REBIF [Suspect]
     Active Substance: INTERFERON BETA-1A
     Indication: MULTIPLE SCLEROSIS
     Route: 058
     Dates: start: 20171017, end: 20190401
  2. REBIF [Suspect]
     Active Substance: INTERFERON BETA-1A
     Dosage: TITRATION PHASE
     Route: 058
     Dates: start: 2019

REACTIONS (4)
  - Asthenia [Recovered/Resolved]
  - Liver function test increased [Recovering/Resolving]
  - Fatigue [Recovered/Resolved]
  - Abdominal abscess [Recovered/Resolved]

NARRATIVE: CASE EVENT DATE: 201903
